FAERS Safety Report 24426599 (Version 6)
Quarter: 2025Q1

REPORT INFORMATION
  Report Type: Spontaneous
  Country: US (occurrence: US)
  Receive Date: 20241011
  Receipt Date: 20250107
  Transmission Date: 20250409
  Serious: Yes (Hospitalization)
  Sender: BIOVITRUM
  Company Number: US-BIOVITRUM-2024-US-012147

PATIENT
  Age: 82 Year
  Sex: Female

DRUGS (2)
  1. KINERET [Suspect]
     Active Substance: ANAKINRA
     Indication: Rheumatoid arthritis
     Route: 058
  2. KINERET [Suspect]
     Active Substance: ANAKINRA
     Route: 058

REACTIONS (12)
  - Rash [Unknown]
  - Dizziness [Unknown]
  - Muscle spasms [Not Recovered/Not Resolved]
  - Peripheral swelling [Unknown]
  - Insomnia [Unknown]
  - Injection site pain [Unknown]
  - Contusion [Unknown]
  - Feeling abnormal [Unknown]
  - Arthralgia [Unknown]
  - Haemoglobin decreased [Unknown]
  - Blood uric acid increased [Unknown]
  - Gout [Unknown]
